FAERS Safety Report 24699247 (Version 1)
Quarter: 2024Q4

REPORT INFORMATION
  Report Type: Spontaneous
  Country: NL (occurrence: NL)
  Receive Date: 20241205
  Receipt Date: 20241205
  Transmission Date: 20250115
  Serious: Yes (Hospitalization)
  Sender: TEVA
  Company Number: None

PATIENT
  Age: 75 Year
  Sex: Male
  Weight: 70 kg

DRUGS (1)
  1. INDAPAMIDE [Suspect]
     Active Substance: INDAPAMIDE
     Indication: Hypertension
     Dosage: 2.5MG (0-WATER) / BRAND NAME NOT SPECIFIED, 1 PIECE ONCE A DAY
     Route: 048
     Dates: start: 20240926, end: 20241113

REACTIONS (3)
  - Hyponatraemia [Recovering/Resolving]
  - Product substitution issue [Unknown]
  - Confusional state [Recovering/Resolving]
